FAERS Safety Report 25666737 (Version 1)
Quarter: 2025Q3

REPORT INFORMATION
  Report Type: Spontaneous
  Country: US (occurrence: US)
  Receive Date: 20250811
  Receipt Date: 20250811
  Transmission Date: 20251020
  Serious: No
  Sender: SANOFI AVENTIS
  Company Number: US-SA-2025SA233283

PATIENT
  Sex: Female
  Weight: 101.82 kg

DRUGS (22)
  1. DUPIXENT [Suspect]
     Active Substance: DUPILUMAB
     Indication: Asthma
     Dosage: 300 MG, QOW
     Route: 058
  2. SUCRALFATE [Concomitant]
     Active Substance: SUCRALFATE
  3. BENADRYL ALLERGY [Concomitant]
     Active Substance: DIPHENHYDRAMINE HYDROCHLORIDE
  4. UBRELVY [Concomitant]
     Active Substance: UBROGEPANT
  5. QULIPTA [Concomitant]
     Active Substance: ATOGEPANT
  6. OXYBUTYNIN CHLORIDE [Concomitant]
     Active Substance: OXYBUTYNIN CHLORIDE
  7. VALTREX [Concomitant]
     Active Substance: VALACYCLOVIR HYDROCHLORIDE
  8. CELEXA [Concomitant]
     Active Substance: CITALOPRAM HYDROBROMIDE
  9. CLARINEX [Concomitant]
     Active Substance: DESLORATADINE
  10. ESTRADIOL [Concomitant]
     Active Substance: ESTRADIOL
  11. METOPROLOL SUCCINATE [Concomitant]
     Active Substance: METOPROLOL SUCCINATE
  12. LISINOPRIL [Concomitant]
     Active Substance: LISINOPRIL
  13. SPIRIVA RESPIMAT [Concomitant]
     Active Substance: TIOTROPIUM BROMIDE
  14. FAMOTIDINE [Concomitant]
     Active Substance: FAMOTIDINE
  15. SINGULAIR [Concomitant]
     Active Substance: MONTELUKAST SODIUM
  16. ROPINIROLE HYDROCHLORIDE [Concomitant]
     Active Substance: ROPINIROLE HYDROCHLORIDE
  17. PHENTERMINE HYDROCHLORIDE [Concomitant]
     Active Substance: PHENTERMINE HYDROCHLORIDE
  18. DICYCLOMINE HYDROCHLORIDE [Concomitant]
     Active Substance: DICYCLOMINE HYDROCHLORIDE
  19. METHOCARBAMOL [Concomitant]
     Active Substance: METHOCARBAMOL
  20. PROMETHAZINE HYDROCHLORIDE [Concomitant]
     Active Substance: PROMETHAZINE HYDROCHLORIDE
  21. CYANOCOBALAMIN [Concomitant]
     Active Substance: CYANOCOBALAMIN
  22. SEROQUEL [Concomitant]
     Active Substance: QUETIAPINE FUMARATE

REACTIONS (2)
  - Blood iron decreased [Not Recovered/Not Resolved]
  - Inappropriate schedule of product administration [Unknown]
